FAERS Safety Report 11137831 (Version 2)
Quarter: 2016Q2

REPORT INFORMATION
  Report Type: Report from Study
  Country: US (occurrence: US)
  Receive Date: 20150526
  Receipt Date: 20160516
  Transmission Date: 20160815
  Serious: No
  Sender: FDA-Public Use
  Company Number: US-MALLINCKRODT-T201501081

PATIENT
  Age: 47 Year
  Sex: Female

DRUGS (6)
  1. REPOSITORY CORTICOTROPIN INJECTION [Suspect]
     Active Substance: CORTICOTROPIN
     Indication: GLOMERULONEPHRITIS MEMBRANOPROLIFERATIVE
     Dosage: 80 UNITS TWICE WKLY
     Route: 058
     Dates: start: 20150107, end: 2015
  2. KLONOPIN [Concomitant]
     Active Substance: CLONAZEPAM
     Dosage: UNK
  3. LISINOPRIL/HYDROCHLOORTHIAZIDE [Concomitant]
  4. CELEXA [Concomitant]
     Active Substance: CITALOPRAM HYDROBROMIDE
  5. ASPIRIN 81 [Concomitant]
     Active Substance: ASPIRIN
  6. REPOSITORY CORTICOTROPIN INJECTION [Suspect]
     Active Substance: CORTICOTROPIN
     Dosage: 80 UNITS TWICE WKLY
     Route: 058
     Dates: start: 201506, end: 201512

REACTIONS (15)
  - Vomiting [Not Recovered/Not Resolved]
  - Visual impairment [Unknown]
  - Hypersomnia [Unknown]
  - Malaise [Not Recovered/Not Resolved]
  - Swelling face [Unknown]
  - Drug dose omission [Not Recovered/Not Resolved]
  - Nausea [Not Recovered/Not Resolved]
  - Contusion [Unknown]
  - Pyrexia [Not Recovered/Not Resolved]
  - Product supply issue [Not Recovered/Not Resolved]
  - Laceration [Unknown]
  - Fatigue [Not Recovered/Not Resolved]
  - Pain [Not Recovered/Not Resolved]
  - Lethargy [Unknown]
  - Headache [Not Recovered/Not Resolved]

NARRATIVE: CASE EVENT DATE: 201501
